FAERS Safety Report 13677420 (Version 1)
Quarter: 2017Q2

REPORT INFORMATION
  Report Type: Spontaneous
  Country: ES (occurrence: ES)
  Receive Date: 20170622
  Receipt Date: 20170622
  Transmission Date: 20170830
  Serious: Yes (Death)
  Sender: FDA-Public Use
  Company Number: ES-IGSA-SR10004969

PATIENT

DRUGS (1)
  1. FLEBOGAMMA DIF [Suspect]
     Active Substance: HUMAN IMMUNOGLOBULIN G
     Indication: GUILLAIN-BARRE SYNDROME
     Dosage: 25 G, QD
     Route: 042
     Dates: start: 20170102, end: 20170106

REACTIONS (2)
  - Myocardial infarction [Fatal]
  - Arrhythmia [Fatal]

NARRATIVE: CASE EVENT DATE: 20170111
